FAERS Safety Report 9584939 (Version 1)
Quarter: 2013Q4

REPORT INFORMATION
  Report Type: Spontaneous
  Country: US (occurrence: US)
  Receive Date: 20131002
  Receipt Date: 20131002
  Transmission Date: 20140711
  Serious: No
  Sender: FDA-Public Use
  Company Number: US-AMGEN-USASP2013056929

PATIENT
  Age: 56 Year
  Sex: Female
  Weight: 57.14 kg

DRUGS (13)
  1. ENBREL [Suspect]
     Indication: RHEUMATOID ARTHRITIS
     Dosage: UNK
     Route: 065
     Dates: start: 201205, end: 2012
  2. AMBIEN [Concomitant]
     Dosage: UNK
  3. AMITRIPTYLINE [Concomitant]
     Dosage: UNK
  4. BIOTIN [Concomitant]
     Dosage: UNK
  5. CALCIUM +D                         /00944201/ [Concomitant]
     Dosage: UNK
  6. FOLIC ACID [Concomitant]
     Dosage: UNK
  7. L-LYSINE                           /00919901/ [Concomitant]
     Dosage: UNK
  8. METHOTREXATE [Concomitant]
     Dosage: UNK
  9. MULTIVITAMINS, PLAIN [Concomitant]
     Dosage: UNK
  10. PREDNISON [Concomitant]
     Dosage: UNK
  11. RELAFEN [Concomitant]
     Dosage: UNK
  12. VITAMIN B [Concomitant]
     Dosage: UNK
  13. VITAMIN C AND E [Concomitant]
     Dosage: UNK

REACTIONS (2)
  - Reaction to preservatives [Unknown]
  - Injection site erythema [Unknown]
